FAERS Safety Report 6343642-9 (Version None)
Quarter: 2009Q3

REPORT INFORMATION
  Report Type: 
  Country: None (occurrence: None)
  Receive Date: 20090904
  Receipt Date: 20090904
  Transmission Date: 20100115
  Serious: Yes (Other)
  Sender: FDA-Public Use
  Company Number: None

PATIENT
  Sex: Female
  Weight: 59.1 kg

DRUGS (2)
  1. TRILIPIX [Suspect]
     Indication: BLOOD CHOLESTEROL INCREASED
     Dosage: 135 MG 1 CAPSULE 1/DAY ORAL
     Route: 048
     Dates: start: 20090615, end: 20090630
  2. TRILIPIX [Suspect]
     Indication: BLOOD TRIGLYCERIDES INCREASED
     Dosage: 135 MG 1 CAPSULE 1/DAY ORAL
     Route: 048
     Dates: start: 20090615, end: 20090630

REACTIONS (2)
  - RASH [None]
  - URTICARIA [None]
